FAERS Safety Report 22196456 (Version 1)
Quarter: 2023Q2

REPORT INFORMATION
  Report Type: Spontaneous
  Country: GB (occurrence: GB)
  Receive Date: 20230411
  Receipt Date: 20230411
  Transmission Date: 20230721
  Serious: Yes (Other)
  Sender: FDA-Public Use
  Company Number: None

PATIENT
  Age: 74 Year
  Sex: Female
  Weight: 35 kg

DRUGS (10)
  1. CIPROFLOXACIN [Suspect]
     Active Substance: CIPROFLOXACIN
     Indication: Sputum test
     Route: 048
     Dates: start: 20230207
  2. AZITHROMYCIN [Concomitant]
     Active Substance: AZITHROMYCIN
  3. CARBOCYSTEINE [Concomitant]
     Active Substance: CARBOCYSTEINE
  4. LANSOPRAZOLE [Concomitant]
     Active Substance: LANSOPRAZOLE
  5. LORAZEPAM [Concomitant]
     Active Substance: LORAZEPAM
  6. PREDNISONE [Concomitant]
     Active Substance: PREDNISONE
  7. ALBUTEROL [Concomitant]
     Active Substance: ALBUTEROL
  8. SENNA [Concomitant]
     Active Substance: SENNA LEAF\SENNOSIDES\SENNOSIDES A AND B
  9. DILTIAZEM HYDROCHLORIDE [Concomitant]
     Active Substance: DILTIAZEM HYDROCHLORIDE
  10. BECLOMETHASONE DIPROPIONATE\FORMOTEROL FUMARATE\GLYCOPYRROLATE [Concomitant]
     Active Substance: BECLOMETHASONE DIPROPIONATE\FORMOTEROL FUMARATE\GLYCOPYRROLATE

REACTIONS (3)
  - Chest pain [Recovered/Resolved]
  - Tendonitis [Recovered/Resolved]
  - Arthralgia [Recovered/Resolved]
